FAERS Safety Report 9717296 (Version 1)
Quarter: 2013Q4

REPORT INFORMATION
  Report Type: Spontaneous
  Country: GB (occurrence: GB)
  Receive Date: 20131127
  Receipt Date: 20131127
  Transmission Date: 20140711
  Serious: Yes (Other)
  Sender: FDA-Public Use
  Company Number: GB-GLAXOSMITHKLINE-B0948452A

PATIENT
  Age: 66 Year
  Sex: Female

DRUGS (10)
  1. ORLISTAT [Suspect]
     Indication: PRODUCT USED FOR UNKNOWN INDICATION
     Dosage: 120MG THREE TIMES PER DAY
     Route: 065
     Dates: start: 200610, end: 201103
  2. METFORMIN [Concomitant]
  3. LEVOTHYROXINE [Concomitant]
  4. LISINOPRIL [Concomitant]
  5. ROSUVASTATIN [Concomitant]
  6. FUROSEMIDE [Concomitant]
  7. GLICLAZIDE [Concomitant]
  8. OMEPRAZOLE [Concomitant]
  9. FLUOXETINE [Concomitant]
  10. LERCANIDIPINE [Concomitant]

REACTIONS (1)
  - Renal impairment [Unknown]
